FAERS Safety Report 8156296-6 (Version None)
Quarter: 2012Q1

REPORT INFORMATION
  Report Type: 
  Country: None (occurrence: None)
  Receive Date: 20120222
  Receipt Date: 20120215
  Transmission Date: 20120608
  Serious: Yes (Hospitalization)
  Sender: FDA-Public Use
  Company Number: US-SANOFI-AVENTIS-2010SA034661

PATIENT
  Age: 73 Year
  Sex: Female
  Weight: 91.16 kg

DRUGS (17)
  1. CLOPIDOGREL BISULFATE [Suspect]
     Indication: ACUTE CORONARY SYNDROME
     Route: 048
     Dates: start: 20100308, end: 20100517
  2. ASPIRIN [Concomitant]
     Dates: start: 20100301
  3. LANTUS [Concomitant]
     Dates: start: 20100301
  4. LASIX [Concomitant]
     Dates: start: 20100301
  5. VITAMIN E [Concomitant]
     Dates: start: 20080101
  6. ASCORBIC ACID [Concomitant]
     Dates: start: 20050101
  7. IMDUR [Concomitant]
     Dates: start: 20100302
  8. BENAZEPRIL HYDROCHLORIDE [Concomitant]
     Dates: start: 20100303
  9. ZOCOR [Concomitant]
     Dates: start: 20090904
  10. NOVOLOG [Concomitant]
     Dates: start: 20040101
  11. ZANTAC [Concomitant]
     Dates: start: 20091119
  12. POTASSIUM CHLORIDE [Concomitant]
     Dates: start: 20100301
  13. CARVEDILOL [Concomitant]
     Dates: start: 20100106
  14. CLOPIDOGREL BISULFATE [Suspect]
     Route: 048
     Dates: start: 20100601
  15. MULTI-VITAMINS [Concomitant]
     Dates: start: 20100330
  16. OSTEO BI-FLEX [Concomitant]
     Dates: start: 20100325
  17. NORVASC [Concomitant]
     Dates: start: 20100322

REACTIONS (3)
  - DIABETIC KETOACIDOSIS [None]
  - IMPAIRED GASTRIC EMPTYING [None]
  - GASTRITIS EROSIVE [None]
